FAERS Safety Report 14909758 (Version 1)
Quarter: 2018Q2

REPORT INFORMATION
  Report Type: Spontaneous
  Country: CN (occurrence: CN)
  Receive Date: 20180517
  Receipt Date: 20180517
  Transmission Date: 20180711
  Serious: Yes (Hospitalization, Other)
  Sender: FDA-Public Use
  Company Number: CN-GILEAD-2018-0338795

PATIENT
  Age: 61 Year
  Sex: Male

DRUGS (1)
  1. HEPSERA [Suspect]
     Active Substance: ADEFOVIR DIPIVOXIL
     Indication: CHRONIC HEPATITIS B
     Dosage: 10 MG, QD
     Route: 065

REACTIONS (13)
  - Fanconi syndrome acquired [Recovering/Resolving]
  - Intervertebral disc protrusion [Recovering/Resolving]
  - Hypokalaemia [Unknown]
  - Renal tubular dysfunction [Recovering/Resolving]
  - Hypophosphataemia [Recovering/Resolving]
  - Tibia fracture [Recovering/Resolving]
  - Rib fracture [Unknown]
  - Bone pain [Recovering/Resolving]
  - Albuminuria [Recovering/Resolving]
  - Glycosuria [Recovering/Resolving]
  - Muscular weakness [Recovering/Resolving]
  - Osteoporosis [Recovering/Resolving]
  - Blood uric acid decreased [Unknown]
